FAERS Safety Report 4502303-9 (Version None)
Quarter: 2004Q4

REPORT INFORMATION
  Report Type: 
  Country: None (occurrence: None)
  Receive Date: 20041116
  Receipt Date: 20041111
  Transmission Date: 20050328
  Serious: Yes (Hospitalization)
  Sender: FDA-Public Use
  Company Number: US-GLAXOSMITHKLINE-A0533637A

PATIENT

DRUGS (2)
  1. TOPOTECAN [Suspect]
     Indication: NON-SMALL CELL LUNG CANCER
     Route: 042
  2. TAXOTERE [Suspect]
     Indication: NON-SMALL CELL LUNG CANCER
     Route: 042

REACTIONS (5)
  - FEBRILE NEUTROPENIA [None]
  - HAEMATEMESIS [None]
  - HYPOTENSION [None]
  - PANCYTOPENIA [None]
  - THROMBOCYTOPENIA [None]
